FAERS Safety Report 8451337-0 (Version None)
Quarter: 2012Q2

REPORT INFORMATION
  Report Type: 
  Country: None (occurrence: None)
  Receive Date: 20120620
  Receipt Date: 20120611
  Transmission Date: 20120825
  Serious: Yes (Hospitalization)
  Sender: FDA-Public Use
  Company Number: US-VERTEX PHARMACEUTICALS INC.-AE-2012-004523

PATIENT
  Sex: Female

DRUGS (4)
  1. RIBAVIRIN [Concomitant]
     Indication: HEPATITIS C
     Route: 048
     Dates: start: 20111126
  2. PEGASYS [Concomitant]
     Indication: HEPATITIS C
     Route: 058
     Dates: start: 20111126
  3. RIBAVIRIN [Concomitant]
  4. INCIVEK [Suspect]
     Indication: HEPATITIS C
     Route: 048
     Dates: start: 20111126, end: 20120220

REACTIONS (4)
  - CHEST PAIN [None]
  - HAEMOGLOBIN DECREASED [None]
  - BLOOD COUNT ABNORMAL [None]
  - DYSPNOEA [None]
